FAERS Safety Report 8835391 (Version 6)
Quarter: 2013Q1

REPORT INFORMATION
  Report Type: Report from Study
  Country: JP (occurrence: JP)
  Receive Date: 20121011
  Receipt Date: 20130326
  Transmission Date: 20140127
  Serious: Yes (Other)
  Sender: FDA-Public Use
  Company Number: JP-CELGENEUS-087-C5013-12100005

PATIENT
  Age: 55 Year
  Sex: Female
  Weight: 49 kg

DRUGS (9)
  1. CC-5013 [Suspect]
     Indication: MYELODYSPLASTIC SYNDROME
     Dosage: 10 MILLIGRAM
     Route: 048
     Dates: start: 20101209, end: 20110105
  2. FLUROMETHOLONE [Concomitant]
     Indication: HORDEOLUM
     Dosage: 1 DROPS
     Route: 047
     Dates: start: 20120123
  3. TOSUFLOXACIN TOSILATE HYDRATE [Concomitant]
     Indication: HORDEOLUM
     Dosage: 1 DROPS
     Route: 047
     Dates: start: 20120123
  4. CYCLOSPORIN [Concomitant]
     Indication: LARGE GRANULAR LYMPHOCYTOSIS
     Dosage: 75 MILLIGRAM
     Route: 048
     Dates: start: 20120530, end: 20120530
  5. CYCLOSPORIN [Concomitant]
     Dosage: 150 MILLIGRAM
     Route: 048
     Dates: start: 20120531, end: 20120602
  6. CYCLOSPORIN [Concomitant]
     Dosage: 200 MILLIGRAM
     Route: 048
     Dates: start: 20120603, end: 20120605
  7. CYCLOSPORIN [Concomitant]
     Dosage: 250 MILLIGRAM
     Route: 048
     Dates: start: 20120606, end: 20120711
  8. CYCLOSPORIN [Concomitant]
     Dosage: 200 MILLIGRAM
     Route: 048
     Dates: start: 20120712, end: 20120725
  9. CYCLOSPORIN [Concomitant]
     Dosage: 250 MILLIGRAM
     Route: 048
     Dates: start: 20120726

REACTIONS (1)
  - T-cell chronic lymphocytic leukaemia [Not Recovered/Not Resolved]
